FAERS Safety Report 7170280-0 (Version None)
Quarter: 2010Q4

REPORT INFORMATION
  Report Type: 
  Country: None (occurrence: None)
  Receive Date: 20101214
  Receipt Date: 20101214
  Transmission Date: 20110411
  Serious: No
  Sender: FDA-Public Use
  Company Number: None

PATIENT
  Age: 60 Year
  Sex: Female
  Weight: 52.1637 kg

DRUGS (2)
  1. DARVOCET [Suspect]
     Indication: ARTHRALGIA
     Dosage: 100 - 650 1 EVERY 4 HOURS 50 TAKEN SINCE 2009  ODD FEELINGS SINCE 2009 AFTER TAKING
     Dates: start: 20090101
  2. DARVOCET [Suspect]
     Indication: BACK PAIN
     Dosage: 100 - 650 1 EVERY 4 HOURS 50 TAKEN SINCE 2009  ODD FEELINGS SINCE 2009 AFTER TAKING
     Dates: start: 20090101

REACTIONS (11)
  - ANGINA PECTORIS [None]
  - ASTHENIA [None]
  - BLINDNESS TRANSIENT [None]
  - COLD SWEAT [None]
  - DISORIENTATION [None]
  - FALL [None]
  - FEELING ABNORMAL [None]
  - HEADACHE [None]
  - LOSS OF CONSCIOUSNESS [None]
  - PALLOR [None]
  - VISION BLURRED [None]
